FAERS Safety Report 21253697 (Version 1)
Quarter: 2022Q3

REPORT INFORMATION
  Report Type: Spontaneous
  Country: US (occurrence: None)
  Receive Date: 20220824
  Receipt Date: 20220824
  Transmission Date: 20221026
  Serious: No
  Sender: FDA-Public Use
  Company Number: None

PATIENT
  Age: 77 Year
  Sex: Male
  Weight: 51.44 kg

DRUGS (6)
  1. CAPECITABINE [Suspect]
     Active Substance: CAPECITABINE
     Indication: Colon cancer
     Dosage: FREQUENCY : TWICE A DAY;?
     Dates: start: 202106
  2. ADVAIR DISKUS [Concomitant]
  3. ATORVASTATIN CALCIUM [Concomitant]
  4. FAMOTIDINE [Concomitant]
  5. PRATROPIUM-ALBUTEROL [Concomitant]
  6. LISINOPRIL [Concomitant]

REACTIONS (1)
  - Disease progression [None]
